FAERS Safety Report 15633682 (Version 3)
Quarter: 2019Q1

REPORT INFORMATION
  Report Type: Spontaneous
  Country: US (occurrence: US)
  Receive Date: 20181119
  Receipt Date: 20190121
  Transmission Date: 20190417
  Serious: No
  Sender: FDA-Public Use
  Company Number: US-SA-2018SA314987

PATIENT
  Sex: Male

DRUGS (1)
  1. DUPIXENT [Suspect]
     Active Substance: DUPILUMAB
     Indication: DERMATITIS ATOPIC
     Dosage: 300 MG, QOW (1 SYRINGE EVERY OTHER WEEK)
     Route: 058
     Dates: start: 20180810

REACTIONS (5)
  - Eye pruritus [Unknown]
  - Dermatitis [Unknown]
  - Drug ineffective [Unknown]
  - Pruritus generalised [Unknown]
  - Dry skin [Unknown]
